FAERS Safety Report 13925691 (Version 2)
Quarter: 2017Q3

REPORT INFORMATION
  Report Type: Spontaneous
  Country: JP (occurrence: JP)
  Receive Date: 20170831
  Receipt Date: 20170912
  Transmission Date: 20171127
  Serious: Yes (Life-Threatening, Other)
  Sender: FDA-Public Use
  Company Number: JP-CONCORDIA PHARMACEUTICALS INC.-GSH201708-004885

PATIENT
  Age: 63 Year
  Sex: Male

DRUGS (5)
  1. PREDNISOLONE. [Suspect]
     Active Substance: PREDNISOLONE
     Route: 048
  2. PREDNISOLONE. [Suspect]
     Active Substance: PREDNISOLONE
     Dosage: GRADUALLY TAPERED
     Route: 048
  3. METHYLPREDNISOLONE [Concomitant]
     Dosage: 1 G OF METHYLPREDNISOLONE PER DAY, ON DAYS 1 - 3, Q7D
  4. PIRFENIDONE. [Concomitant]
     Active Substance: PIRFENIDONE
     Route: 048
  5. PREDNISOLONE. [Suspect]
     Active Substance: PREDNISOLONE
     Route: 048

REACTIONS (4)
  - Cataract [Unknown]
  - Disease recurrence [Unknown]
  - Glucose tolerance impaired [Unknown]
  - Drug ineffective [Unknown]
